FAERS Safety Report 15802794 (Version 2)
Quarter: 2019Q2

REPORT INFORMATION
  Report Type: Report from Study
  Country: BR (occurrence: BR)
  Receive Date: 20190109
  Receipt Date: 20190410
  Transmission Date: 20190711
  Serious: Yes (Other)
  Sender: FDA-Public Use
  Company Number: PHHY2019BR002497

PATIENT
  Sex: Female
  Weight: 43 kg

DRUGS (1)
  1. ACLASTA [Suspect]
     Active Substance: ZOLEDRONIC ACID
     Indication: OSTEOPOROSIS
     Dosage: 1 DF, Q12MO
     Route: 042

REACTIONS (8)
  - Arthritis [Unknown]
  - Hypertension [Unknown]
  - Arthralgia [Unknown]
  - Rheumatic disorder [Unknown]
  - Hypoaesthesia [Not Recovered/Not Resolved]
  - Pain in extremity [Unknown]
  - Carpal tunnel syndrome [Not Recovered/Not Resolved]
  - Joint stiffness [Not Recovered/Not Resolved]
